FAERS Safety Report 9069858 (Version 1)
Quarter: 2013Q1

REPORT INFORMATION
  Report Type: Report from Study
  Country: US (occurrence: US)
  Receive Date: 20130129
  Receipt Date: 20130129
  Transmission Date: 20140127
  Serious: No
  Sender: FDA-Public Use
  Company Number: US-ABBOTT-12P-163-0942511-00

PATIENT
  Age: 10 Year
  Sex: Male

DRUGS (2)
  1. HUMIRA 40 MG/ 0.8 ML PRE-FILLED SYRINGE [Suspect]
     Indication: CROHN^S DISEASE
     Dates: start: 20120206, end: 20120514
  2. CYPROHEPTADINE [Concomitant]
     Indication: INCREASED APPETITE

REACTIONS (9)
  - Ocular hyperaemia [Recovered/Resolved]
  - Lacrimation increased [Recovered/Resolved]
  - Eye discharge [Recovered/Resolved]
  - Ocular hyperaemia [Recovered/Resolved]
  - Lacrimation increased [Recovered/Resolved]
  - Eye discharge [Recovered/Resolved]
  - Ocular hyperaemia [Recovered/Resolved]
  - Lacrimation increased [Recovered/Resolved]
  - Eye discharge [Recovered/Resolved]
